FAERS Safety Report 20867241 (Version 4)
Quarter: 2022Q4

REPORT INFORMATION
  Report Type: Spontaneous
  Country: US (occurrence: US)
  Receive Date: 20220524
  Receipt Date: 20221025
  Transmission Date: 20230112
  Serious: No
  Sender: FDA-Public Use
  Company Number: US-PFIZER INC-202200637516

PATIENT
  Sex: Female

DRUGS (1)
  1. WATER [Suspect]
     Active Substance: WATER
     Dosage: UNK
     Route: 058

REACTIONS (4)
  - Injection site swelling [Not Recovered/Not Resolved]
  - Injection site irritation [Not Recovered/Not Resolved]
  - Injection site pain [Recovered/Resolved]
  - Injection site erythema [Not Recovered/Not Resolved]
